FAERS Safety Report 4750720-4 (Version None)
Quarter: 2005Q3

REPORT INFORMATION
  Report Type: 
  Country: None (occurrence: None)
  Receive Date: 20050822
  Receipt Date: 20050808
  Transmission Date: 20060218
  Serious: Yes (Hospitalization)
  Sender: FDA-Public Use
  Company Number: 195583

PATIENT
  Age: 46 Year
  Sex: Female
  Weight: 69.8539 kg

DRUGS (2)
  1. AVONEX [Suspect]
     Indication: MULTIPLE SCLEROSIS
     Dosage: SEE IMAGE
     Route: 030
     Dates: start: 20020101, end: 20030801
  2. AVONEX [Suspect]
     Indication: MULTIPLE SCLEROSIS
     Dosage: SEE IMAGE
     Route: 030
     Dates: start: 20030801, end: 20031001

REACTIONS (5)
  - ANTICONVULSANT DRUG LEVEL DECREASED [None]
  - CONDITION AGGRAVATED [None]
  - CONVULSION [None]
  - DECUBITUS ULCER [None]
  - OSTEOMYELITIS [None]
